FAERS Safety Report 7376534-7 (Version None)
Quarter: 2011Q1

REPORT INFORMATION
  Report Type: 
  Country: None (occurrence: None)
  Receive Date: 20110325
  Receipt Date: 20110324
  Transmission Date: 20110831
  Serious: Yes (Other)
  Sender: FDA-Public Use
  Company Number: US-ABBOTT-11P-163-0710464-00

PATIENT
  Sex: Female
  Weight: 65.83 kg

DRUGS (10)
  1. VITAMIN D [Concomitant]
     Indication: VITAMIN SUPPLEMENTATION
     Route: 048
  2. MELATONIN [Concomitant]
     Indication: MEDICAL DIET
     Route: 048
  3. LUNESTA [Concomitant]
     Indication: INSOMNIA
     Dosage: OR BENADRYL
     Route: 048
  4. MULTI-VITAMIN [Concomitant]
     Indication: VITAMIN SUPPLEMENTATION
     Route: 048
  5. CALCIUM [Concomitant]
     Indication: MINERAL SUPPLEMENTATION
     Route: 048
  6. BENADRYL [Concomitant]
     Indication: INSOMNIA
     Dosage: OR LUNESTA
     Route: 048
  7. FLAX SEED [Concomitant]
     Indication: PHYTOTHERAPY
     Route: 048
  8. HUMIRA [Suspect]
     Indication: PSORIASIS
     Route: 058
     Dates: start: 20100901
  9. LO/OVRAL [Concomitant]
     Indication: HORMONE THERAPY
     Route: 048
  10. HUMIRA [Suspect]
     Route: 058
     Dates: start: 20100401, end: 20100901

REACTIONS (4)
  - PRECANCEROUS SKIN LESION [None]
  - SKIN ATROPHY [None]
  - INCREASED APPETITE [None]
  - WEIGHT INCREASED [None]
